FAERS Safety Report 8173080-8 (Version None)
Quarter: 2012Q1

REPORT INFORMATION
  Report Type: 
  Country: None (occurrence: None)
  Receive Date: 20120223
  Receipt Date: 20120208
  Transmission Date: 20120608
  Serious: Yes (Other)
  Sender: FDA-Public Use
  Company Number: JPI-P-015826

PATIENT
  Age: 70 Year
  Sex: Female
  Weight: 97.5234 kg

DRUGS (5)
  1. UNSPECIFIED BLOO DPRESSURE MEDICATIONS [Concomitant]
  2. XYREM [Suspect]
     Indication: SLEEP DISORDER
     Dosage: ORAL 6 GM (3 GM, 2 IN 1 D), ORAL
     Route: 048
     Dates: start: 20050608
  3. LEVOTHYROXINE SODIUM [Concomitant]
  4. MODAFINIL [Concomitant]
  5. UNSPECIFIED ACID REFLUX MEDICATION [Concomitant]

REACTIONS (5)
  - POLYP [None]
  - INTERVERTEBRAL DISC PROTRUSION [None]
  - GASTRIC DISORDER [None]
  - CYST [None]
  - NERVE COMPRESSION [None]
